FAERS Safety Report 10013951 (Version 2)
Quarter: 2014Q1

REPORT INFORMATION
  Report Type: Spontaneous
  Country: US (occurrence: US)
  Receive Date: 20140316
  Receipt Date: 20140318
  Transmission Date: 20141002
  Serious: Yes (Other)
  Sender: FDA-Public Use
  Company Number: US-LUNDBECK-DKLU1097058

PATIENT
  Sex: Male

DRUGS (4)
  1. SABRIL (TABLET) [Suspect]
     Indication: TEMPORAL LOBE EPILEPSY
     Route: 048
     Dates: start: 20131217
  2. SABRIL (TABLET) [Suspect]
     Indication: EPILEPSY
  3. SABRIL (TABLET) [Suspect]
     Indication: GRAND MAL CONVULSION
  4. ONFI [Suspect]
     Indication: PRODUCT USED FOR UNKNOWN INDICATION
     Route: 048

REACTIONS (2)
  - Depression [Unknown]
  - Fatigue [Unknown]
